FAERS Safety Report 15498589 (Version 1)
Quarter: 2018Q4

REPORT INFORMATION
  Report Type: Spontaneous
  Country: US (occurrence: US)
  Receive Date: 20181015
  Receipt Date: 20181015
  Transmission Date: 20190205
  Serious: Yes (Other)
  Sender: FDA-Public Use
  Company Number: None

PATIENT
  Age: 64 Year
  Sex: Female
  Weight: 75.5 kg

DRUGS (13)
  1. ATENOLOL. [Concomitant]
     Active Substance: ATENOLOL
     Dates: start: 20181004, end: 20181005
  2. LISINOPRIL. [Concomitant]
     Active Substance: LISINOPRIL
     Dates: start: 20181004, end: 20181007
  3. METOPROLOL. [Concomitant]
     Active Substance: METOPROLOL
     Dates: start: 20181004, end: 20181007
  4. HEPARIN [Concomitant]
     Active Substance: HEPARIN SODIUM
     Dates: start: 20181004, end: 20181005
  5. ACETAMINOPHEN. [Concomitant]
     Active Substance: ACETAMINOPHEN
     Dates: start: 20181005, end: 20181005
  6. ASPIRIN. [Concomitant]
     Active Substance: ASPIRIN
     Dates: start: 20181005, end: 20181007
  7. SERTRALINE [Concomitant]
     Active Substance: SERTRALINE HYDROCHLORIDE
     Dates: start: 20181005, end: 20181007
  8. BRILINTA [Suspect]
     Active Substance: TICAGRELOR
     Indication: STENT PLACEMENT
     Dosage: ?          OTHER FREQUENCY:ONCE;?
     Route: 048
     Dates: start: 20181005, end: 20181005
  9. ATORVASTATIN [Concomitant]
     Active Substance: ATORVASTATIN
     Dates: start: 20181005, end: 20181007
  10. ETHACRYNIC ACID. [Concomitant]
     Active Substance: ETHACRYNIC ACID
     Dates: start: 20181004, end: 20181005
  11. NITROGLYCERIN. [Concomitant]
     Active Substance: NITROGLYCERIN
     Dates: start: 20181004, end: 20181005
  12. IPRATROPIUM BROMIDE AND ALBUTEROL SULFATE [Concomitant]
     Active Substance: ALBUTEROL SULFATE\IPRATROPIUM BROMIDE
     Dates: start: 20181004, end: 20181005
  13. BRILINTA [Suspect]
     Active Substance: TICAGRELOR
     Indication: CATHETERISATION CARDIAC
     Dosage: ?          OTHER FREQUENCY:ONCE;?
     Route: 048
     Dates: start: 20181005, end: 20181005

REACTIONS (2)
  - Panic attack [None]
  - Sinus bradycardia [None]

NARRATIVE: CASE EVENT DATE: 20181005
